FAERS Safety Report 9999042 (Version 1)
Quarter: 2014Q1

REPORT INFORMATION
  Report Type: Spontaneous
  Country: CA (occurrence: CA)
  Receive Date: 20140312
  Receipt Date: 20140312
  Transmission Date: 20141002
  Serious: Yes (Other)
  Sender: FDA-Public Use
  Company Number: CA-AMGEN-CANSP2014016600

PATIENT
  Sex: Female

DRUGS (1)
  1. PROLIA [Suspect]
     Indication: OSTEOPOROSIS POSTMENOPAUSAL
     Dosage: 60 MG, Q6MO
     Route: 058
     Dates: start: 201210

REACTIONS (7)
  - Localised infection [Unknown]
  - Skin discolouration [Unknown]
  - Pain [Unknown]
  - Gait disturbance [Unknown]
  - Back disorder [Unknown]
  - Insomnia [Unknown]
  - Oedema peripheral [Unknown]
